FAERS Safety Report 24391482 (Version 5)
Quarter: 2024Q4

REPORT INFORMATION
  Report Type: Spontaneous
  Country: BE (occurrence: BE)
  Receive Date: 20241003
  Receipt Date: 20241125
  Transmission Date: 20250115
  Serious: Yes (Hospitalization, Other)
  Sender: PFIZER
  Company Number: BE-ROCHE-3563317

PATIENT
  Age: 47 Year
  Sex: Male
  Weight: 89.2 kg

DRUGS (41)
  1. CARBOPLATIN [Suspect]
     Active Substance: CARBOPLATIN
     Indication: Non-small cell lung cancer metastatic
     Dosage: 625 MG, EVERY 3 WEEKS
     Route: 042
     Dates: start: 20240313
  2. PEMBROLIZUMAB [Suspect]
     Active Substance: PEMBROLIZUMAB
     Indication: Non-small cell lung cancer metastatic
     Dosage: 200 MG, EVERY 3 WEEKS
     Route: 042
     Dates: start: 20240313
  3. PEMETREXED [Suspect]
     Active Substance: PEMETREXED
     Indication: Non-small cell lung cancer metastatic
     Dosage: 1000 MG, EVERY 3 WEEKS
     Route: 042
     Dates: start: 20240313
  4. DIVARASIB [Suspect]
     Active Substance: DIVARASIB
     Indication: Non-small cell lung cancer metastatic
     Dosage: UNK
     Route: 048
  5. DIVARASIB [Suspect]
     Active Substance: DIVARASIB
     Dosage: 200 MG, 1X/DAY
     Route: 048
     Dates: start: 20240313
  6. DIVARASIB [Suspect]
     Active Substance: DIVARASIB
     Dosage: 200 MG, 1X/DAY
     Route: 048
     Dates: start: 20240319
  7. NADROPARIN CALCIUM [Concomitant]
     Active Substance: NADROPARIN CALCIUM
     Dosage: 3800 IU, 1X/DAY
     Route: 058
     Dates: start: 20240513, end: 20240519
  8. TRAMADOL HYDROCHLORIDE [Concomitant]
     Active Substance: TRAMADOL HYDROCHLORIDE
     Indication: Musculoskeletal chest pain
     Dosage: 100 MG, 2X/DAY
     Route: 048
     Dates: start: 20240906
  9. MEDROL [Concomitant]
     Active Substance: METHYLPREDNISOLONE
     Indication: Urticaria
     Dosage: 16 MG, 2X/DAY
     Route: 048
     Dates: start: 20240314, end: 20240316
  10. MEDROL [Concomitant]
     Active Substance: METHYLPREDNISOLONE
     Dosage: 16 MG, 2X/DAY
     Route: 048
     Dates: start: 20240423, end: 20240427
  11. MEDROL [Concomitant]
     Active Substance: METHYLPREDNISOLONE
     Dosage: 16 MG, 2X/DAY
     Route: 048
     Dates: start: 20240513, end: 20240513
  12. MEDROL [Concomitant]
     Active Substance: METHYLPREDNISOLONE
     Dosage: 2 MG, 1X/DAY
     Route: 048
     Dates: start: 20240918
  13. MEDROL [Concomitant]
     Active Substance: METHYLPREDNISOLONE
     Dosage: 32 MG, 1X/DAY
     Route: 048
     Dates: start: 20241001, end: 20241001
  14. MEDROL [Concomitant]
     Active Substance: METHYLPREDNISOLONE
     Dosage: 16 MG, 2X/DAY
     Route: 048
     Dates: start: 20241002, end: 20241003
  15. MEDROL [Concomitant]
     Active Substance: METHYLPREDNISOLONE
     Dosage: 2 MG, 1X/DAY
     Route: 048
     Dates: start: 20241004, end: 20241008
  16. BACTRIM [Concomitant]
     Active Substance: SULFAMETHOXAZOLE\TRIMETHOPRIM
     Dosage: 1 OTHER, 2X/WEEK
     Route: 048
     Dates: start: 20240328, end: 20240404
  17. FOLIC ACID [Concomitant]
     Active Substance: FOLIC ACID
     Dosage: 0.4 MG, 1X/DAY
     Route: 048
     Dates: start: 20240229
  18. CALCIUM CARBONATE\CHOLECALCIFEROL [Concomitant]
     Active Substance: CALCIUM CARBONATE\CHOLECALCIFEROL
     Dosage: 1 DF, 1X/DAY
     Route: 048
     Dates: start: 20240328, end: 20240827
  19. SOLU-MEDROL [Concomitant]
     Active Substance: METHYLPREDNISOLONE SODIUM SUCCINATE
     Indication: Urticaria
     Dosage: 40 MG, 1X/DAY
     Route: 042
     Dates: start: 20240313, end: 20240313
  20. SOLU-MEDROL [Concomitant]
     Active Substance: METHYLPREDNISOLONE SODIUM SUCCINATE
     Dosage: 40 MG, 1X/DAY
     Route: 042
     Dates: start: 20240403, end: 20240403
  21. SOLU-MEDROL [Concomitant]
     Active Substance: METHYLPREDNISOLONE SODIUM SUCCINATE
     Dosage: 40 MG, 1X/DAY
     Route: 042
     Dates: start: 20240423, end: 20240423
  22. SOLU-MEDROL [Concomitant]
     Active Substance: METHYLPREDNISOLONE SODIUM SUCCINATE
     Dosage: 125 MG, 1X/DAY
     Dates: start: 20240930, end: 20240930
  23. ALIZAPRIDE HYDROCHLORIDE [Concomitant]
     Active Substance: ALIZAPRIDE HYDROCHLORIDE
     Indication: Nausea
     Dosage: 50 MG, AS NEEDED
     Route: 048
     Dates: start: 20240315, end: 20240401
  24. ALIZAPRIDE HYDROCHLORIDE [Concomitant]
     Active Substance: ALIZAPRIDE HYDROCHLORIDE
     Dosage: 50 MG, AS NEEDED
     Route: 048
     Dates: start: 20240906
  25. MOVICOL [Concomitant]
     Active Substance: POLYETHYLENE GLYCOL 3350\POTASSIUM CHLORIDE\SODIUM BICARBONATE\SODIUM CHLORIDE
     Indication: Constipation
     Dosage: UNK UNK, AS NEEDED
     Route: 048
     Dates: start: 20240315
  26. PEGFILGRASTIM [Concomitant]
     Active Substance: PEGFILGRASTIM
     Dosage: 6 MG, EVERY 3 WEEKS
     Route: 058
     Dates: start: 20240314, end: 20240424
  27. DEXAMETHASONE [Concomitant]
     Active Substance: DEXAMETHASONE
     Indication: Non-small cell lung cancer metastatic
     Dosage: 4 MG, 2X/DAY
     Dates: start: 20240715, end: 20240720
  28. DEXAMETHASONE [Concomitant]
     Active Substance: DEXAMETHASONE
     Dosage: 4 MG, 2X/DAY
     Route: 048
     Dates: start: 20240805, end: 20240809
  29. DEXAMETHASONE [Concomitant]
     Active Substance: DEXAMETHASONE
     Dosage: 4 MG, 2X/DAY
     Route: 048
     Dates: start: 20240826, end: 20240830
  30. DEXAMETHASONE [Concomitant]
     Active Substance: DEXAMETHASONE
     Dosage: 4 MG, 2X/DAY
     Route: 048
     Dates: start: 20240916, end: 20240920
  31. DEXAMETHASONE [Concomitant]
     Active Substance: DEXAMETHASONE
     Dosage: 4 MG, 2X/DAY
     Dates: start: 20241007, end: 20241007
  32. PANTOPRAZOLE SODIUM [Concomitant]
     Active Substance: PANTOPRAZOLE SODIUM
     Dosage: 40 MG, 1X/DAY
     Route: 048
     Dates: start: 20240328
  33. DEXTROSE\SODIUM CHLORIDE [Concomitant]
     Active Substance: DEXTROSE\SODIUM CHLORIDE
     Dosage: 1 OTHER, 1X/DAY
     Route: 042
     Dates: start: 20240423, end: 20240423
  34. AKYNZEO (NETUPITANT\PALONOSETRON HYDROCHLORIDE) [Concomitant]
     Active Substance: NETUPITANT\PALONOSETRON HYDROCHLORIDE
     Indication: Non-small cell lung cancer metastatic
     Dosage: 1 DF, 1X/DAY
     Route: 048
     Dates: start: 20240313, end: 20240313
  35. AKYNZEO (NETUPITANT\PALONOSETRON HYDROCHLORIDE) [Concomitant]
     Active Substance: NETUPITANT\PALONOSETRON HYDROCHLORIDE
     Dosage: 1 DF, 1X/DAY
     Route: 048
     Dates: start: 20240403, end: 20240403
  36. AKYNZEO (NETUPITANT\PALONOSETRON HYDROCHLORIDE) [Concomitant]
     Active Substance: NETUPITANT\PALONOSETRON HYDROCHLORIDE
     Dosage: 1 DF, 1X/DAY
     Route: 048
     Dates: start: 20240423, end: 20240423
  37. BLEPHACLEAN [Concomitant]
     Indication: Blepharitis
     Dosage: 1 OTHER, 1X/DAY
     Route: 047
     Dates: start: 20240517, end: 20240519
  38. BLEPHACLEAN [Concomitant]
     Dosage: 8 MG, EVERY 4 DAYS
     Route: 058
     Dates: start: 20240513, end: 20240520
  39. INDOMETHACIN [Concomitant]
     Active Substance: INDOMETHACIN
     Dosage: UNK UNK, AS NEEDED
     Route: 047
     Dates: start: 20240423, end: 20240521
  40. CLEMASTINE FUMARATE [Concomitant]
     Active Substance: CLEMASTINE FUMARATE
     Indication: Urticaria
     Dosage: 2 MG, 1X/DAY
     Dates: start: 20240930, end: 20240930
  41. AMYLMETACRESOL\DICHLOROBENZYL ALCOHOL [Concomitant]
     Active Substance: AMYLMETACRESOL\DICHLOROBENZYL ALCOHOL
     Indication: Pharyngitis
     Dosage: 1 DF, AS NEEDED
     Route: 048
     Dates: start: 20241017, end: 20241022

REACTIONS (4)
  - Diverticulitis [Recovered/Resolved]
  - Peritonitis [Recovered/Resolved]
  - Alanine aminotransferase increased [Not Recovered/Not Resolved]
  - Aspartate aminotransferase increased [Not Recovered/Not Resolved]

NARRATIVE: CASE EVENT DATE: 20240319
